FAERS Safety Report 7509313-8 (Version None)
Quarter: 2011Q2

REPORT INFORMATION
  Report Type: 
  Country: None (occurrence: None)
  Receive Date: 20110527
  Receipt Date: 20110519
  Transmission Date: 20111010
  Serious: Yes (Other)
  Sender: FDA-Public Use
  Company Number: US-AMGEN-USASP2011026022

PATIENT
  Age: 71 Year
  Sex: Female

DRUGS (1)
  1. ENBREL [Suspect]
     Indication: RHEUMATOID ARTHRITIS
     Dosage: 50 MG, QWK
     Dates: start: 20080801

REACTIONS (8)
  - VISUAL ACUITY REDUCED [None]
  - OCULAR HYPERAEMIA [None]
  - SKIN DISCOLOURATION [None]
  - INJECTION SITE PAIN [None]
  - NASOPHARYNGITIS [None]
  - FATIGUE [None]
  - HEADACHE [None]
  - COUGH [None]
